FAERS Safety Report 7658797-3 (Version None)
Quarter: 2011Q3

REPORT INFORMATION
  Report Type: 
  Country: None (occurrence: None)
  Receive Date: 20110805
  Receipt Date: 20110805
  Transmission Date: 20111222
  Serious: No
  Sender: FDA-Public Use
  Company Number: None

PATIENT
  Age: 50 Year
  Sex: Female
  Weight: 49.441 kg

DRUGS (1)
  1. LISINOPRIL [Suspect]
     Indication: HYPERTENSION
     Dosage: 10 MG
     Dates: start: 20110603, end: 20110804

REACTIONS (6)
  - HEADACHE [None]
  - CHILLS [None]
  - DYSPHONIA [None]
  - MUSCULOSKELETAL STIFFNESS [None]
  - FATIGUE [None]
  - FEELING ABNORMAL [None]
